FAERS Safety Report 6220539-6 (Version None)
Quarter: 2009Q2

REPORT INFORMATION
  Report Type: 
  Country: None (occurrence: None)
  Receive Date: 20090610
  Receipt Date: 20090601
  Transmission Date: 20091009
  Serious: Yes (Death, Hospitalization, Other)
  Sender: FDA-Public Use
  Company Number: JP-PFIZER INC-2009222541

PATIENT
  Age: 67 Year

DRUGS (6)
  1. SUNITINIB MALATE [Suspect]
     Indication: RENAL CELL CARCINOMA
     Dosage: 50 MG, DAILY, TDD 50 MG
     Route: 048
     Dates: start: 20090323, end: 20090413
  2. OXYCONTIN [Concomitant]
     Indication: CANCER PAIN
     Route: 048
  3. MORPHINE HYDROCHLORIDE [Concomitant]
     Indication: CANCER PAIN
     Route: 048
  4. LASIX [Concomitant]
     Dosage: 20 MG, ONCE DAILY
     Route: 048
     Dates: start: 20090327
  5. URSO 250 [Concomitant]
     Indication: LIVER DISORDER
     Dosage: 100 MG, THREE TIMES DAILY
     Route: 048
     Dates: start: 20090327
  6. URSO 250 [Concomitant]
     Indication: RENAL IMPAIRMENT

REACTIONS (2)
  - HEPATIC FAILURE [None]
  - PLATELET COUNT DECREASED [None]
